FAERS Safety Report 12740977 (Version 1)
Quarter: 2016Q3

REPORT INFORMATION
  Report Type: Spontaneous
  Country: GB (occurrence: GB)
  Receive Date: 20160914
  Receipt Date: 20160914
  Transmission Date: 20161109
  Serious: Yes (Hospitalization)
  Sender: FDA-Public Use
  Company Number: GB-TEVA-690877ACC

PATIENT
  Age: 46 Year
  Sex: Female

DRUGS (5)
  1. AMITRIPTYLINE [Suspect]
     Active Substance: AMITRIPTYLINE
     Dosage: 10 MILLIGRAM DAILY; AT NIGHT, INTRODUCED IN LAST COUPLE OF MONTHS
  2. ATORVASTATIN [Suspect]
     Active Substance: ATORVASTATIN
     Dosage: 40 MILLIGRAM DAILY; AT NIGHT, INTRODUCED IN LAST COUPLE OF MONTHS
  3. FLUCLOXACILLIN [Concomitant]
     Active Substance: FLUCLOXACILLIN
     Dosage: MULTIPLE COURSES
  4. GLICLAZIDE [Concomitant]
     Active Substance: GLICLAZIDE
     Dosage: 40 MILLIGRAM DAILY; ONE TO BE TAKEN TWICE DAILY -PATIENT TAKES EVERY MORNING
  5. METFORMIN [Concomitant]
     Active Substance: METFORMIN HYDROCHLORIDE
     Dosage: 1 GRAM  IN THE MORNING, 500 MILLIGRAMS AT TEATIME.

REACTIONS (3)
  - Pruritus [Unknown]
  - Abnormal loss of weight [Unknown]
  - Pemphigoid [Recovering/Resolving]
